FAERS Safety Report 25518396 (Version 1)
Quarter: 2025Q3

REPORT INFORMATION
  Report Type: Other
  Country: CA (occurrence: CA)
  Receive Date: 20250704
  Receipt Date: 20250704
  Transmission Date: 20251020
  Serious: Yes (Other)
  Sender: APOTEX
  Company Number: CA-PGRTD-E2B_07708311

PATIENT
  Age: 60 Year
  Sex: Female

DRUGS (4)
  1. DULOXETINE [Suspect]
     Active Substance: DULOXETINE
     Indication: Pain
     Route: 065
  2. DULOXETINE [Suspect]
     Active Substance: DULOXETINE
     Route: 065
  3. DULOXETINE [Suspect]
     Active Substance: DULOXETINE
     Route: 065
  4. TALTZ [Suspect]
     Active Substance: IXEKIZUMAB
     Indication: Psoriatic arthropathy
     Route: 058

REACTIONS (4)
  - Wound complication [Unknown]
  - Peripheral venous disease [Unknown]
  - Hepatic necrosis [Unknown]
  - Feeling abnormal [Unknown]
